FAERS Safety Report 12496691 (Version 3)
Quarter: 2017Q1

REPORT INFORMATION
  Report Type: Report from Study
  Country: AU (occurrence: AU)
  Receive Date: 20160624
  Receipt Date: 20170119
  Transmission Date: 20170428
  Serious: Yes (Other)
  Sender: FDA-Public Use
  Company Number: AU-AMGEN-AUSSP2016078982

PATIENT
  Age: 89 Year
  Sex: Female

DRUGS (8)
  1. MIRTAZAPINE. [Concomitant]
     Active Substance: MIRTAZAPINE
     Dosage: 30 MG, UNK
  2. FOLIC ACID. [Concomitant]
     Active Substance: FOLIC ACID
  3. MELATONIN [Concomitant]
     Active Substance: MELATONIN
     Dosage: 4 MG, UNK
  4. CINACALCET HCL [Suspect]
     Active Substance: CINACALCET HYDROCHLORIDE
     Indication: PARATHYROID TUMOUR BENIGN
     Dosage: 30 MG, BID
     Route: 048
     Dates: start: 201310
  5. VITAMIN D [Concomitant]
     Active Substance: CHOLECALCIFEROL
     Dosage: 1000 MG, UNK
  6. PANADOL [Concomitant]
     Active Substance: ACETAMINOPHEN
     Dosage: 5 MG, QD
  7. CINACALCET HCL [Suspect]
     Active Substance: CINACALCET HYDROCHLORIDE
     Dosage: 90 MG, UNK
     Route: 048
  8. THYROXINE [Concomitant]
     Active Substance: LEVOTHYROXINE
     Dosage: 10 MG, UNK

REACTIONS (8)
  - Dementia [Unknown]
  - Hypothyroidism [Unknown]
  - Living in residential institution [Unknown]
  - Malaise [Unknown]
  - Blood calcium increased [Unknown]
  - Agitation [Unknown]
  - Anxiety [Unknown]
  - Off label use [Unknown]

NARRATIVE: CASE EVENT DATE: 201605
